FAERS Safety Report 18665905 (Version 1)
Quarter: 2020Q4

REPORT INFORMATION
  Report Type: Spontaneous
  Country: DE (occurrence: DE)
  Receive Date: 20201226
  Receipt Date: 20201226
  Transmission Date: 20210114
  Serious: Yes (Hospitalization)
  Sender: FDA-Public Use
  Company Number: DE-TEVA-2020-DE-1860914

PATIENT
  Age: 54 Year
  Sex: Female
  Weight: 75 kg

DRUGS (3)
  1. MAGNESIUM VERLA [Concomitant]
     Active Substance: MAGNESIUM
     Dosage: 400 MILLIGRAM DAILY; 1-0-0-0
     Route: 048
  2. PREDNISOLON 5MG [Suspect]
     Active Substance: PREDNISOLONE
     Dosage: 5 MILLIGRAM DAILY; 1-0-0-0
     Route: 048
  3. IMBRUVICA [Suspect]
     Active Substance: IBRUTINIB
     Dosage: 420 MG, DISCONTINUED ON 13-AUG-2020
     Route: 048

REACTIONS (5)
  - Pyrexia [Unknown]
  - General physical health deterioration [Unknown]
  - Condition aggravated [Unknown]
  - Dyspnoea [Unknown]
  - Cough [Unknown]
